FAERS Safety Report 5043769-8 (Version None)
Quarter: 2006Q2

REPORT INFORMATION
  Report Type: 
  Country: None (occurrence: None)
  Receive Date: 20060628
  Receipt Date: 20060619
  Transmission Date: 20061013
  Serious: Yes (Death, Hospitalization)
  Sender: FDA-Public Use
  Company Number: 163-21880-06030167

PATIENT
  Age: 61 Year
  Sex: Female

DRUGS (9)
  1. REVLIMID [Suspect]
     Indication: HODGKIN'S DISEASE
     Dosage: SEE IMAGE
     Route: 048
     Dates: start: 20060208, end: 20060224
  2. REVLIMID [Suspect]
     Indication: MYELODYSPLASTIC SYNDROME
     Dosage: SEE IMAGE
     Route: 048
     Dates: start: 20060208, end: 20060224
  3. REVLIMID [Suspect]
     Indication: HODGKIN'S DISEASE
     Dosage: SEE IMAGE
     Route: 048
     Dates: start: 20060208, end: 20060224
  4. REVLIMID [Suspect]
     Indication: MYELODYSPLASTIC SYNDROME
     Dosage: SEE IMAGE
     Route: 048
     Dates: start: 20060208, end: 20060224
  5. REVLIMID [Suspect]
     Indication: HODGKIN'S DISEASE
     Dosage: SEE IMAGE
     Route: 048
     Dates: start: 20060228, end: 20060303
  6. REVLIMID [Suspect]
     Indication: MYELODYSPLASTIC SYNDROME
     Dosage: SEE IMAGE
     Route: 048
     Dates: start: 20060228, end: 20060303
  7. REVLIMID [Suspect]
     Indication: HODGKIN'S DISEASE
     Dosage: SEE IMAGE
     Route: 048
     Dates: start: 20060301
  8. REVLIMID [Suspect]
     Indication: MYELODYSPLASTIC SYNDROME
     Dosage: SEE IMAGE
     Route: 048
     Dates: start: 20060301
  9. CEPHALEXIN [Suspect]

REACTIONS (8)
  - COUGH [None]
  - DEHYDRATION [None]
  - DIARRHOEA [None]
  - DISEASE PROGRESSION [None]
  - HYPOXIA [None]
  - MYELODYSPLASTIC SYNDROME [None]
  - OXYGEN SATURATION DECREASED [None]
  - SEPSIS [None]
